FAERS Safety Report 20933890 (Version 2)
Quarter: 2022Q3

REPORT INFORMATION
  Report Type: Spontaneous
  Country: US (occurrence: US)
  Receive Date: 20220608
  Receipt Date: 20220714
  Transmission Date: 20221026
  Serious: No
  Sender: FDA-Public Use
  Company Number: US-PFIZER INC-202200803722

PATIENT
  Age: 76 Year
  Sex: Male
  Weight: 104.3 kg

DRUGS (3)
  1. PAXLOVID [Suspect]
     Active Substance: NIRMATRELVIR\RITONAVIR
     Indication: COVID-19 treatment
     Dosage: UNK
     Dates: start: 20220602
  2. LOVASTATIN [Suspect]
     Active Substance: LOVASTATIN
     Dosage: 40 MG
     Dates: start: 20141201, end: 20220602
  3. LOVASTATIN [Suspect]
     Active Substance: LOVASTATIN
     Dosage: 40 MG
     Dates: start: 20220606

REACTIONS (2)
  - Dysgeusia [Recovered/Resolved]
  - Contraindicated product administered [Unknown]

NARRATIVE: CASE EVENT DATE: 20220602
